FAERS Safety Report 23153144 (Version 1)
Quarter: 2023Q4

REPORT INFORMATION
  Report Type: Spontaneous
  Country: ES (occurrence: ES)
  Receive Date: 20231107
  Receipt Date: 20231107
  Transmission Date: 20240110
  Serious: Yes (Other)
  Sender: FDA-Public Use
  Company Number: None

PATIENT
  Age: 49 Year
  Sex: Female

DRUGS (13)
  1. DAPTOMYCIN [Suspect]
     Active Substance: DAPTOMYCIN
     Indication: Arthritis bacterial
     Dosage: STRENGTH 350 MG INJECTION PERFUSION
     Route: 042
     Dates: start: 20190117, end: 20190206
  2. CEFTAROLINE [Suspect]
     Active Substance: CEFTAROLINE
     Indication: Arthritis bacterial
     Dosage: STRENGTH 600 MG,INJECTABLE PERFUSION
     Route: 042
     Dates: start: 20190115, end: 20190206
  3. METAMIZOL [Concomitant]
     Active Substance: METAMIZOLE SODIUM
  4. TRAMADOL [Concomitant]
     Active Substance: TRAMADOL\TRAMADOL HYDROCHLORIDE
     Dosage: STRENGTH 50 MG
  5. POTASSIUM CHLORIDE [Concomitant]
     Active Substance: POTASSIUM CHLORIDE
     Dosage: STRENGTH 600 MG
  6. PREGABALIN [Concomitant]
     Active Substance: PREGABALIN
  7. QUETIAPINE [Concomitant]
     Active Substance: QUETIAPINE
     Dosage: STRENGTH 25 MG
  8. DENOSUMAB [Concomitant]
     Active Substance: DENOSUMAB
  9. TAPENTADOL [Concomitant]
     Active Substance: TAPENTADOL
  10. BILASTINE [Concomitant]
     Active Substance: BILASTINE
  11. OMEPRAZOLE [Concomitant]
     Active Substance: OMEPRAZOLE
  12. RIVOTRIL [Concomitant]
     Active Substance: CLONAZEPAM
     Dosage: STRENGTH 2.5 MG / ML,ORAL DROPS IN SOLUTION
  13. FOLIC ACID [Concomitant]
     Active Substance: FOLIC ACID
     Dosage: STRENGTH 5 MG

REACTIONS (1)
  - Neutropenia [Recovered/Resolved]

NARRATIVE: CASE EVENT DATE: 20190117
